FAERS Safety Report 4499518-5 (Version None)
Quarter: 2004Q4

REPORT INFORMATION
  Report Type: 
  Country: None (occurrence: None)
  Receive Date: 20040928
  Receipt Date: 20040621
  Transmission Date: 20050328
  Serious: No
  Sender: FDA-Public Use
  Company Number: 04P-163-0248016-00

PATIENT
  Age: 61 Year
  Sex: Male
  Weight: 95.2554 kg

DRUGS (10)
  1. HUMIRA [Suspect]
     Indication: RHEUMATOID ARTHRITIS
     Dosage: 40 MG, 1 IN 2 WK, SUBCUTANEOUS
     Route: 058
     Dates: start: 20031124
  2. HUMIRA [Suspect]
     Indication: RHEUMATOID ARTHRITIS
     Dosage: 40 MG, 1 IN 2 WK, SUBCUTANEOUS
     Route: 058
     Dates: start: 20040501
  3. METHOTREXATE [Concomitant]
  4. PREDNISONE [Concomitant]
  5. VICODIN [Concomitant]
  6. FOLIC ACID [Concomitant]
  7. NICOTINIC ACID [Concomitant]
  8. RETINOL [Concomitant]
  9. TOCOPHEROL CONCENTRATE CAP [Concomitant]
  10. ASCORBIC ACID [Concomitant]

REACTIONS (3)
  - DIZZINESS [None]
  - DRUG INEFFECTIVE [None]
  - OEDEMA PERIPHERAL [None]
